FAERS Safety Report 18938630 (Version 1)
Quarter: 2021Q1

REPORT INFORMATION
  Report Type: Spontaneous
  Country: US (occurrence: US)
  Receive Date: 20210224
  Receipt Date: 20210224
  Transmission Date: 20210420
  Serious: Yes (Other)
  Sender: FDA-Public Use
  Company Number: None

PATIENT
  Age: 78 Year
  Sex: Female
  Weight: 104.4 kg

DRUGS (17)
  1. ESTRADIOL VAGINAL CREAM, USP 0.01% PRODUCT OF GERMANY [Suspect]
     Active Substance: ESTRADIOL
     Indication: CYSTITIS
     Dosage: ?          QUANTITY:0.01 DROP(S);OTHER FREQUENCY:3 DAYS A WEEK;?
     Route: 067
     Dates: start: 20210104, end: 20210222
  2. METOPROLOL. [Concomitant]
     Active Substance: METOPROLOL
  3. VITAMIN E [Concomitant]
     Active Substance: .ALPHA.-TOCOPHEROL
  4. IODINE. [Concomitant]
     Active Substance: IODINE
  5. D?MANNOSE [Concomitant]
  6. VITAMIN C [Concomitant]
     Active Substance: ASCORBIC ACID
  7. COENZYME Q10 [Concomitant]
     Active Substance: DIETARY SUPPLEMENT\UBIDECARENONE
  8. C?PAP MACHINE [Concomitant]
     Active Substance: DEVICE
  9. VITAMIN A [Concomitant]
     Active Substance: VITAMIN A
  10. VITAMIN D3 [Concomitant]
     Active Substance: CHOLECALCIFEROL
  11. ZINC. [Concomitant]
     Active Substance: ZINC
  12. ELIQUIS [Concomitant]
     Active Substance: APIXABAN
  13. POTASSIUM [Concomitant]
     Active Substance: POTASSIUM
  14. MAGNESIUM [Concomitant]
     Active Substance: MAGNESIUM
  15. OMEGA 3 FISH OIL [Concomitant]
     Active Substance: FISH OIL\OMEGA-3 FATTY ACIDS
  16. LEVOTHYROXINE. [Concomitant]
     Active Substance: LEVOTHYROXINE
  17. VITAMIN B [Concomitant]
     Active Substance: VITAMIN B

REACTIONS (4)
  - Vulvovaginal pruritus [None]
  - Breast pain [None]
  - Dyspnoea [None]
  - Nipple pain [None]

NARRATIVE: CASE EVENT DATE: 20210222
